FAERS Safety Report 23647132 (Version 2)
Quarter: 2024Q1

REPORT INFORMATION
  Report Type: Spontaneous
  Country: TR (occurrence: TR)
  Receive Date: 20240319
  Receipt Date: 20240329
  Transmission Date: 20240410
  Serious: No
  Sender: FDA-Public Use
  Company Number: TR-ABBVIE-5680520

PATIENT
  Sex: Male

DRUGS (3)
  1. KALETRA [Suspect]
     Active Substance: LOPINAVIR\RITONAVIR
     Indication: HIV infection
     Route: 048
     Dates: start: 20230119
  2. ENOXAPARIN [Concomitant]
     Active Substance: ENOXAPARIN
     Indication: Product used for unknown indication
     Route: 065
  3. BIKTARVY [Suspect]
     Active Substance: BICTEGRAVIR SODIUM\EMTRICITABINE\TENOFOVIR ALAFENAMIDE FUMARATE
     Indication: HIV infection
     Route: 048
     Dates: start: 20221101

REACTIONS (2)
  - Oral candidiasis [Unknown]
  - Aggression [Unknown]
